FAERS Safety Report 5314630-6 (Version None)
Quarter: 2007Q2

REPORT INFORMATION
  Report Type: 
  Country: None (occurrence: None)
  Receive Date: 20070426
  Receipt Date: 20070418
  Transmission Date: 20071010
  Serious: Yes (Hospitalization)
  Sender: FDA-Public Use
  Company Number: WAES 0704USA04204

PATIENT
  Age: 57 Year
  Sex: Male

DRUGS (10)
  1. ZETIA [Suspect]
     Indication: BLOOD CHOLESTEROL
     Dosage: 10 MG/DAILY/PO
     Route: 048
  2. CIPRO [Suspect]
     Indication: PROPHYLAXIS
     Dosage: 250 MG/DAILY
  3. ASPIRIN [Suspect]
     Indication: PROPHYLAXIS
     Dosage: 81 MG/DAILY
     Dates: start: 19860101, end: 20030810
  4. XANAX [Suspect]
     Indication: SLEEP DISORDER
     Dosage: 0.5 MG/DAILY/PO
     Route: 048
  5. TOPROL-XL [Suspect]
     Indication: HYPERTENSION
     Dosage: 50 MG/DAILY/PO
     Route: 048
  6. PROTONIX [Suspect]
     Indication: HYPERTENSION
     Dosage: 40 MG/DAILY/PO
     Route: 048
  7. AMIODARONE HCL [Suspect]
     Dosage: 200MG/BID/PO
     Route: 048
  8. FLUOROURACIL [Concomitant]
  9. IRINOTECAN HCL [Concomitant]
  10. LEUCOVORIN CALCIUM [Concomitant]

REACTIONS (8)
  - ABDOMINAL PAIN [None]
  - ANGINA PECTORIS [None]
  - BLOOD SODIUM DECREASED [None]
  - CONSTIPATION [None]
  - HAEMATOCRIT DECREASED [None]
  - HAEMOGLOBIN DECREASED [None]
  - INTESTINAL OBSTRUCTION [None]
  - WHITE BLOOD CELL COUNT INCREASED [None]
